FAERS Safety Report 7969678-X (Version None)
Quarter: 2011Q4

REPORT INFORMATION
  Report Type: 
  Country: None (occurrence: None)
  Receive Date: 20111212
  Receipt Date: 20111129
  Transmission Date: 20120403
  Serious: Yes (Other)
  Sender: FDA-Public Use
  Company Number: US-RANBAXY-2011RR-50820

PATIENT
  Sex: Female

DRUGS (11)
  1. CIPROFLOXACIN [Suspect]
     Indication: POSTOPERATIVE WOUND INFECTION
     Dosage: 500 MG, UNK
     Route: 048
     Dates: start: 20101108
  2. CYCLOBENZAPRINE [Concomitant]
     Indication: MUSCLE RELAXANT THERAPY
     Dosage: UNK
     Route: 065
     Dates: start: 20050101, end: 20110101
  3. LEVAQUIN [Suspect]
     Dosage: 500 MG, QD
     Route: 048
     Dates: start: 20100614
  4. CYMBALTA [Concomitant]
     Indication: ANXIETY
     Dosage: UNK
     Route: 065
     Dates: start: 20050101
  5. LEVAQUIN [Suspect]
     Dosage: 750 MG, QD
     Route: 048
     Dates: start: 20101001
  6. METHYLPREDNISOLONE [Suspect]
     Indication: ANTIINFLAMMATORY THERAPY
     Dosage: UNK
     Route: 065
     Dates: start: 20100101
  7. CYMBALTA [Concomitant]
     Indication: PAIN
  8. HYDROCODONE [Concomitant]
     Indication: PAIN
     Dosage: UNK
     Route: 065
     Dates: start: 20070101, end: 20110101
  9. LEVAQUIN [Suspect]
     Dosage: 750 MG, QD
     Route: 048
     Dates: start: 20100616
  10. LEVAQUIN [Suspect]
     Dosage: 500 MG, QD
     Dates: start: 20100819
  11. LEVAQUIN [Suspect]
     Indication: POSTOPERATIVE WOUND INFECTION
     Dosage: UNK
     Route: 048
     Dates: start: 20100515

REACTIONS (2)
  - TENDONITIS [None]
  - MENISCUS LESION [None]
